FAERS Safety Report 5993738-6 (Version None)
Quarter: 2008Q4

REPORT INFORMATION
  Report Type: 
  Country: None (occurrence: None)
  Receive Date: 20081212
  Receipt Date: 20081201
  Transmission Date: 20090506
  Serious: Yes (Hospitalization)
  Sender: FDA-Public Use
  Company Number: US-ELI_LILLY_AND_COMPANY-US200804005267

PATIENT
  Sex: Female

DRUGS (3)
  1. FORTEO [Suspect]
     Indication: OSTEOPOROSIS
     Dosage: UNK, UNK
     Dates: start: 20070801, end: 20080506
  2. FORTEO [Suspect]
     Dates: start: 20080101
  3. CALCIUM [Concomitant]
     Indication: OSTEOPOROSIS

REACTIONS (10)
  - DISTURBANCE IN ATTENTION [None]
  - DIVERTICULITIS [None]
  - DIZZINESS [None]
  - DRUG HYPERSENSITIVITY [None]
  - GASTRITIS EROSIVE [None]
  - MUSCLE SPASMS [None]
  - PAIN [None]
  - PAIN IN EXTREMITY [None]
  - RASH GENERALISED [None]
  - SLUGGISHNESS [None]
